FAERS Safety Report 7022242-1 (Version None)
Quarter: 2010Q3

REPORT INFORMATION
  Report Type: 
  Country: None (occurrence: None)
  Receive Date: 20100930
  Receipt Date: 20100917
  Transmission Date: 20110219
  Serious: Yes (Other)
  Sender: FDA-Public Use
  Company Number: US-ELI_LILLY_AND_COMPANY-US201009005257

PATIENT
  Sex: Male

DRUGS (8)
  1. CYMBALTA [Suspect]
     Indication: NEUROPATHY PERIPHERAL
     Dosage: 60 MG, DAILY (1/D)
     Dates: start: 20081101
  2. CYMBALTA [Suspect]
     Dosage: 30 MG, DAILY (1/D)
  3. CYMBALTA [Suspect]
     Dosage: 60 MG, DAILY (1/D)
  4. GABAPENTIN [Concomitant]
     Indication: NEUROPATHY PERIPHERAL
     Dosage: 300 MG, 2/D
  5. SOMA [Concomitant]
     Indication: MUSCLE SPASMS
     Dates: start: 20080101
  6. MELOXICAM [Concomitant]
     Dosage: 15 MG, DAILY (1/D)
  7. ZOLPIDEM [Concomitant]
     Dosage: 10 MG, EACH EVENING
  8. VICODIN [Concomitant]
     Dosage: UNK, AS NEEDED

REACTIONS (6)
  - DRUG PRESCRIBING ERROR [None]
  - ERECTILE DYSFUNCTION [None]
  - GENITAL HYPOAESTHESIA [None]
  - INTERVERTEBRAL DISC DEGENERATION [None]
  - OFF LABEL USE [None]
  - PROCEDURAL PAIN [None]
